FAERS Safety Report 17028296 (Version 2)
Quarter: 2021Q2

REPORT INFORMATION
  Report Type: Report from Study
  Country: FR (occurrence: FR)
  Receive Date: 20191113
  Receipt Date: 20210406
  Transmission Date: 20210716
  Serious: Yes (Death, Other)
  Sender: FDA-Public Use
  Company Number: FR-JAZZ-2019-FR-015503

PATIENT

DRUGS (5)
  1. DEFITELIO [Suspect]
     Active Substance: DEFIBROTIDE SODIUM
     Indication: VENOOCCLUSIVE LIVER DISEASE
     Dosage: 25 MG/KG/DAY
     Route: 065
     Dates: start: 20180522, end: 20180531
  2. CANCIDAS [Concomitant]
     Active Substance: CASPOFUNGIN ACETATE
  3. TERLIPRESSIN [Concomitant]
     Active Substance: TERLIPRESSIN
  4. ALBUMIN [Concomitant]
     Active Substance: ALBUMIN HUMAN
  5. HEPARIN [Concomitant]
     Active Substance: HEPARIN SODIUM
     Indication: VENOOCCLUSIVE LIVER DISEASE

REACTIONS (1)
  - Haemorrhage [Unknown]
